FAERS Safety Report 20438043 (Version 3)
Quarter: 2022Q2

REPORT INFORMATION
  Report Type: Spontaneous
  Country: US (occurrence: US)
  Receive Date: 20220207
  Receipt Date: 20220405
  Transmission Date: 20220721
  Serious: No
  Sender: FDA-Public Use
  Company Number: US-LUPIN PHARMACEUTICALS INC.-2022-01570

PATIENT
  Sex: Male
  Weight: 72.562 kg

DRUGS (6)
  1. AMLODIPINE [Suspect]
     Active Substance: AMLODIPINE BESYLATE
     Indication: Hypertension
     Dosage: 2.5 MILLIGRAM, QD (ONE TABLET PER DAY, IN EVENING)
     Route: 065
     Dates: start: 20211202, end: 20220110
  2. AMLODIPINE [Suspect]
     Active Substance: AMLODIPINE BESYLATE
     Dosage: 5 MILLIGRAM, QD (DOSE INCREASED, 2 TABLETS OF 2.5MG STRENGTH PER DAY, IN EVENING)
     Route: 065
     Dates: start: 2022
  3. AMLODIPINE [Suspect]
     Active Substance: AMLODIPINE BESYLATE
     Dosage: 2.5 MILLIGRAM, QD (ONE TABLET PER DAY, IN EVENING)
     Route: 065
     Dates: start: 2022
  4. AMLODIPINE [Suspect]
     Active Substance: AMLODIPINE BESYLATE
     Dosage: 5 MILLIGRAM, QD (2 TABLETS OF 2.5MG STRENGTH PER DAY, IN EVENING)
     Route: 065
     Dates: start: 2022
  5. CLONIDINE [Concomitant]
     Active Substance: CLONIDINE
     Indication: Hypertension
     Dosage: 0.1 MILLIGRAM, QD (ONE PILL EVERY DAY, IN MORNING)
     Route: 065
  6. TEKTURNA [Concomitant]
     Active Substance: ALISKIREN HEMIFUMARATE
     Indication: Hypertension
     Dosage: 150 MILLIGRAM, BID (2 PILLS EVERY DAY, ONE IN MORNING AND ONE IN EVENING)
     Route: 065

REACTIONS (4)
  - Asthenia [Not Recovered/Not Resolved]
  - Fatigue [Not Recovered/Not Resolved]
  - Dry mouth [Not Recovered/Not Resolved]
  - Influenza like illness [Not Recovered/Not Resolved]
